FAERS Safety Report 14555334 (Version 1)
Quarter: 2018Q1

REPORT INFORMATION
  Report Type: Spontaneous
  Country: US (occurrence: US)
  Receive Date: 20180219
  Receipt Date: 20180219
  Transmission Date: 20180509
  Serious: No
  Sender: FDA-Public Use
  Company Number: None

PATIENT
  Age: 13 Month
  Sex: Male
  Weight: 10.35 kg

DRUGS (1)
  1. TAMIFLU [Suspect]
     Active Substance: OSELTAMIVIR PHOSPHATE
     Indication: INFLUENZA
     Dosage: ?          QUANTITY:1 5 ML DOSE;?
     Route: 048
     Dates: start: 20180216, end: 20180219

REACTIONS (8)
  - Eating disorder [None]
  - Abnormal behaviour [None]
  - Dyskinesia [None]
  - Inability to crawl [None]
  - Dysstasia [None]
  - Head banging [None]
  - Screaming [None]
  - Crying [None]

NARRATIVE: CASE EVENT DATE: 20180217
